FAERS Safety Report 10611723 (Version 3)
Quarter: 2014Q4

REPORT INFORMATION
  Report Type: Report from Study
  Country: AU (occurrence: AU)
  Receive Date: 20141126
  Receipt Date: 20141217
  Transmission Date: 20150529
  Serious: Yes (Hospitalization, Other)
  Sender: FDA-Public Use
  Company Number: PHHY2014AU150409

PATIENT
  Age: 34 Year
  Sex: Male
  Weight: 130 kg

DRUGS (2)
  1. CLOZARIL [Suspect]
     Active Substance: CLOZAPINE
     Indication: SCHIZOPHRENIA
     Dosage: 100 MG, BID
     Route: 048
     Dates: start: 200912
  2. CLOZARIL [Suspect]
     Active Substance: CLOZAPINE
     Dosage: 75 MG
     Route: 048
     Dates: start: 20141125, end: 20141201

REACTIONS (50)
  - Myocarditis [Unknown]
  - Cough [Unknown]
  - Tachycardia [Unknown]
  - Tricuspid valve incompetence [Unknown]
  - Blood calcium decreased [Unknown]
  - Diarrhoea [Unknown]
  - Myalgia [Unknown]
  - Migraine [Unknown]
  - Hallucination [Unknown]
  - Oedema peripheral [Unknown]
  - Red blood cell count decreased [Not Recovered/Not Resolved]
  - Malaise [Unknown]
  - Monocyte count increased [Recovered/Resolved]
  - Pyrexia [Unknown]
  - Pulmonary valve incompetence [Unknown]
  - Neuroleptic malignant syndrome [Unknown]
  - Blood albumin decreased [Unknown]
  - Sinus bradycardia [Unknown]
  - Blood pressure decreased [Unknown]
  - Pleuritic pain [Unknown]
  - Chest pain [Recovering/Resolving]
  - Meningitis [Unknown]
  - Mitral valve incompetence [Unknown]
  - Lobar pneumonia [Recovered/Resolved]
  - Delusion [Unknown]
  - Tenderness [Unknown]
  - Tobacco withdrawal symptoms [Unknown]
  - Sinus tachycardia [Unknown]
  - Dyspnoea [Unknown]
  - Rash [Unknown]
  - Epilepsy [Unknown]
  - Viraemia [Unknown]
  - Oropharyngeal pain [Unknown]
  - Blood fibrinogen decreased [Unknown]
  - Haemoglobin decreased [Unknown]
  - Platelet count decreased [Recovered/Resolved]
  - Somnolence [Unknown]
  - Headache [Unknown]
  - Musculoskeletal stiffness [Unknown]
  - Psychotic disorder [Unknown]
  - Movement disorder [Unknown]
  - Haematocrit decreased [Not Recovered/Not Resolved]
  - Blood potassium decreased [Unknown]
  - Left atrial dilatation [Unknown]
  - Electrocardiogram T wave inversion [Unknown]
  - Prothrombin time prolonged [Unknown]
  - Antipsychotic drug level above therapeutic [Unknown]
  - Chills [Unknown]
  - Chest discomfort [Unknown]
  - Lymphocyte count decreased [Recovered/Resolved]

NARRATIVE: CASE EVENT DATE: 2009
